FAERS Safety Report 6370196-3 (Version None)
Quarter: 2009Q3

REPORT INFORMATION
  Report Type: 
  Country: None (occurrence: None)
  Receive Date: 20090923
  Receipt Date: 20090911
  Transmission Date: 20100115
  Serious: Yes (Life-Threatening, Disabling)
  Sender: FDA-Public Use
  Company Number: BR-PFIZER INC-2009245791

PATIENT
  Age: 64 Year

DRUGS (6)
  1. SUTENT [Suspect]
     Indication: GASTROINTESTINAL STROMAL TUMOUR
     Dosage: 50 MG, 4 WEEKS EVERY SIX WEEKS
     Route: 048
     Dates: start: 20090128, end: 20090903
  2. OMEPRAZOL [Concomitant]
     Dosage: UNK
     Dates: start: 20061020
  3. FOLIC ACID [Concomitant]
     Dosage: UNK
     Dates: start: 20061020
  4. CITONEURON [Concomitant]
     Dosage: UNK
     Dates: start: 20061020
  5. DIPYRONE [Concomitant]
     Dosage: UNK
     Dates: start: 20061020
  6. IMOSEC [Concomitant]
     Dosage: UNK
     Dates: start: 20061020

REACTIONS (4)
  - ASCITES [None]
  - HEPATIC LESION [None]
  - OEDEMA PERIPHERAL [None]
  - PROTEINURIA [None]
